FAERS Safety Report 19709675 (Version 2)
Quarter: 2022Q2

REPORT INFORMATION
  Report Type: Spontaneous
  Country: ES (occurrence: ES)
  Receive Date: 20210816
  Receipt Date: 20220608
  Transmission Date: 20220721
  Serious: Yes (Other)
  Sender: FDA-Public Use
  Company Number: ES-NAPPMUNDI-GBR-2021-0089166

PATIENT
  Age: 55 Year
  Sex: Female

DRUGS (9)
  1. GABAPENTIN [Suspect]
     Active Substance: GABAPENTIN
     Indication: Neuralgia
     Dosage: 600 MG, 3X/DAY
     Route: 065
     Dates: start: 201905
  2. GABAPENTIN [Suspect]
     Active Substance: GABAPENTIN
     Dosage: 900 MG, 3X/DAY
     Route: 065
     Dates: start: 202003
  3. TRAMADOL HYDROCHLORIDE [Suspect]
     Active Substance: TRAMADOL HYDROCHLORIDE
     Indication: Neuralgia
     Dosage: 75 MG, 2X/DAY
     Route: 065
     Dates: start: 201905
  4. TRAMADOL HYDROCHLORIDE [Suspect]
     Active Substance: TRAMADOL HYDROCHLORIDE
     Dosage: 200 MG, 2X/DAY
     Route: 065
     Dates: start: 202003
  5. AMITRIPTYLINE [Suspect]
     Active Substance: AMITRIPTYLINE
     Indication: Neuralgia
     Dosage: 25 MG, 1X/DAY
     Route: 065
     Dates: start: 201905
  6. CLONAZEPAM [Concomitant]
     Active Substance: CLONAZEPAM
     Dosage: 0.5 MG, 2X/DAY
     Route: 065
  7. METHOTREXATE [Concomitant]
     Active Substance: METHOTREXATE
     Indication: Rheumatoid arthritis
     Dosage: UNK
  8. CAPSAICIN [Concomitant]
     Active Substance: CAPSAICIN
     Indication: Neuralgia
     Dosage: UNK
  9. ENALAPRIL [Concomitant]
     Active Substance: ENALAPRIL
     Indication: Hypertension
     Dosage: UNK
     Dates: start: 2013

REACTIONS (1)
  - Drug ineffective [Not Recovered/Not Resolved]
